FAERS Safety Report 13663258 (Version 1)
Quarter: 2017Q2

REPORT INFORMATION
  Report Type: Spontaneous
  Country: RO (occurrence: RO)
  Receive Date: 20170619
  Receipt Date: 20170619
  Transmission Date: 20170830
  Serious: Yes (Other)
  Sender: FDA-Public Use
  Company Number: RO-ROCHE-1952048

PATIENT
  Age: 44 Year
  Sex: Female
  Weight: 157 kg

DRUGS (2)
  1. MABTHERA [Suspect]
     Active Substance: RITUXIMAB
     Indication: RHEUMATOID ARTHRITIS
     Dosage: 500 MG X 2 EVERY 2 WEEKS
     Route: 042
     Dates: start: 20090921
  2. LEFLUNOMIDE. [Concomitant]
     Active Substance: LEFLUNOMIDE
     Indication: RHEUMATOID ARTHRITIS
     Route: 048
     Dates: start: 20060616

REACTIONS (2)
  - Meningitis viral [Recovered/Resolved]
  - Facial paresis [Recovered/Resolved]

NARRATIVE: CASE EVENT DATE: 20161013
